FAERS Safety Report 5326621-X (Version None)
Quarter: 2007Q2

REPORT INFORMATION
  Report Type: 
  Country: None (occurrence: None)
  Receive Date: 20070516
  Receipt Date: 20070507
  Transmission Date: 20071010
  Serious: Yes (Other)
  Sender: FDA-Public Use
  Company Number: CA-ASTRAZENECA-2007UW09760

PATIENT
  Age: 68 Year
  Sex: Female

DRUGS (4)
  1. ARIMIDEX [Suspect]
     Route: 048
     Dates: start: 20070401
  2. FOSAMAX [Concomitant]
  3. VITAMIN D [Concomitant]
  4. VITAMIN CAP [Concomitant]

REACTIONS (6)
  - BIOPSY [None]
  - DRY MOUTH [None]
  - GLOSSODYNIA [None]
  - LEUKOPLAKIA [None]
  - ORAL MUCOSAL BLISTERING [None]
  - SALIVA ALTERED [None]
